FAERS Safety Report 4673348-3 (Version None)
Quarter: 2005Q2

REPORT INFORMATION
  Report Type: 
  Country: None (occurrence: None)
  Receive Date: 20050523
  Receipt Date: 20050505
  Transmission Date: 20051028
  Serious: No
  Sender: FDA-Public Use
  Company Number: DSA_26410_2005

PATIENT

DRUGS (2)
  1. ENALAPRIL MALEATE [Suspect]
     Indication: DIABETES MELLITUS
     Dosage: 10 MG Q DAY
     Route: 048
  2. ENALAPRIL MALEATE [Suspect]
     Indication: ESSENTIAL HYPERTENSION
     Dosage: 10 MG Q DAY
     Route: 048

REACTIONS (1)
  - CARDIAC FAILURE [None]
